FAERS Safety Report 7225108-7 (Version None)
Quarter: 2011Q1

REPORT INFORMATION
  Report Type: 
  Country: None (occurrence: None)
  Receive Date: 20110113
  Receipt Date: 20110105
  Transmission Date: 20110831
  Serious: Yes (Hospitalization)
  Sender: FDA-Public Use
  Company Number: IN-SANOFI-AVENTIS-2010SA077930

PATIENT
  Age: 58 Year
  Sex: Male
  Weight: 66.8 kg

DRUGS (19)
  1. LANTUS [Suspect]
     Dosage: DOSE:28 UNIT(S)
     Route: 058
     Dates: start: 20100909, end: 20100915
  2. SOLOSTAR [Suspect]
     Route: 058
     Dates: start: 20100804, end: 20101223
  3. OPTICLICK [Suspect]
     Route: 058
     Dates: start: 20101027, end: 20101223
  4. METFORMIN [Concomitant]
     Route: 048
     Dates: start: 20091204, end: 20101224
  5. LANTUS [Suspect]
     Dosage: DOSE:40 UNIT(S)
     Route: 058
     Dates: start: 20100927, end: 20101006
  6. LANTUS [Suspect]
     Dosage: DOSE:44 UNIT(S)
     Route: 058
     Dates: start: 20101007, end: 20101018
  7. ENALAPRIL [Concomitant]
     Route: 048
     Dates: start: 20050101, end: 20101224
  8. PLACEBO [Suspect]
     Route: 058
     Dates: start: 20101027, end: 20101103
  9. PLACEBO [Suspect]
     Route: 058
     Dates: start: 20101104, end: 20101108
  10. LANTUS [Suspect]
     Dosage: DOSE:46 UNIT(S)
     Route: 058
     Dates: start: 20101019, end: 20101223
  11. LANTUS [Suspect]
     Dosage: DOSE:10 UNIT(S)
     Route: 058
     Dates: start: 20100804, end: 20100810
  12. LANTUS [Suspect]
     Dosage: DOSE:36 UNIT(S)
     Route: 058
     Dates: start: 20100923, end: 20100926
  13. LANTUS [Suspect]
     Dosage: DOSE:20 UNIT(S)
     Route: 058
     Dates: start: 20100826, end: 20100830
  14. LANTUS [Suspect]
     Dosage: DOSE:32 UNIT(S)
     Route: 058
     Dates: start: 20100916, end: 20100922
  15. LANTUS [Suspect]
     Dosage: DOSE:14 UNIT(S)
     Route: 058
     Dates: start: 20100811, end: 20100818
  16. LANTUS [Suspect]
     Dosage: DOSE:16 UNIT(S)
     Route: 058
     Dates: start: 20100819, end: 20100821
  17. PLACEBO [Suspect]
     Route: 058
     Dates: start: 20101109, end: 20101223
  18. LANTUS [Suspect]
     Dosage: DOSE:24 UNIT(S)
     Route: 058
     Dates: start: 20100831, end: 20100908
  19. ATORVASTATIN [Concomitant]
     Route: 048
     Dates: start: 20100809, end: 20101224

REACTIONS (2)
  - PULMONARY OEDEMA [None]
  - ACUTE MYOCARDIAL INFARCTION [None]
